FAERS Safety Report 24347896 (Version 1)
Quarter: 2024Q3

REPORT INFORMATION
  Report Type: Report from Study
  Country: NL (occurrence: NL)
  Receive Date: 20240923
  Receipt Date: 20240923
  Transmission Date: 20241017
  Serious: Yes (Death, Other)
  Sender: AMGEN
  Company Number: NL-AMGEN-NLDSL2024184804

PATIENT
  Age: 82 Year
  Sex: Female

DRUGS (1)
  1. PROLIA [Suspect]
     Active Substance: DENOSUMAB
     Indication: Prophylaxis
     Dosage: 60 MILLIGRAM/1 ML, Q6MO
     Route: 058
     Dates: start: 20240416, end: 20240416

REACTIONS (7)
  - Death [Fatal]
  - Hip fracture [Unknown]
  - Delirium [Unknown]
  - Diarrhoea [Unknown]
  - Fall [Unknown]
  - Wrist fracture [Unknown]
  - Off label use [Unknown]

NARRATIVE: CASE EVENT DATE: 20240101
